FAERS Safety Report 24322871 (Version 2)
Quarter: 2024Q4

REPORT INFORMATION
  Report Type: Spontaneous
  Country: CA (occurrence: CA)
  Receive Date: 20240916
  Receipt Date: 20241216
  Transmission Date: 20250115
  Serious: Yes (Other)
  Sender: HIKMA
  Company Number: CA-HIKMA PHARMACEUTICALS USA INC.-CA-H14001-24-08245

PATIENT
  Age: 7 Year
  Sex: Male
  Weight: 30 kg

DRUGS (17)
  1. ELAPRASE [Suspect]
     Active Substance: IDURSULFASE
     Dosage: 15.5 MILLIGRAM, WEEKLY
     Route: 042
  2. ELAPRASE [Suspect]
     Active Substance: IDURSULFASE
     Indication: Mucopolysaccharidosis II
     Dosage: 15.8 MILLIGRAM, WEEKLY
     Route: 042
  3. ELAPRASE [Suspect]
     Active Substance: IDURSULFASE
     Dosage: 16.15 MILLIGRAM, WEEKLY
     Route: 042
  4. ELAPRASE [Suspect]
     Active Substance: IDURSULFASE
     Dosage: 16.15 MILLIGRAM, WEEKLY
     Route: 065
  5. ELAPRASE [Suspect]
     Active Substance: IDURSULFASE
     Dosage: 16.3 MILLIGRAM, WEEKLY
     Route: 065
  6. ELAPRASE [Suspect]
     Active Substance: IDURSULFASE
     Dosage: 16.5 MILLIGRAM, WEEKLY
     Route: 042
  7. ELAPRASE [Suspect]
     Active Substance: IDURSULFASE
     Dosage: 16.5 MILLIGRAM, WEEKLY
     Route: 050
  8. ELAPRASE [Suspect]
     Active Substance: IDURSULFASE
     Dosage: 16.6 MILLIGRAM, WEEKLY
     Route: 050
  9. ELAPRASE [Suspect]
     Active Substance: IDURSULFASE
     Dosage: 3 DOSAGE FORM, WEEKLY
     Route: 042
  10. ELAPRASE [Suspect]
     Active Substance: IDURSULFASE
     Dosage: 3 DOSAGE FORM, WEEKLY
     Route: 065
  11. ELAPRASE [Suspect]
     Active Substance: IDURSULFASE
     Dosage: UNK UNK, WEEKLY
     Route: 042
  12. ELAPRASE [Suspect]
     Active Substance: IDURSULFASE
     Dosage: 18 MILLIGRAM, WEEKLY
     Route: 065
  13. ELAPRASE [Suspect]
     Active Substance: IDURSULFASE
     Dosage: UNK
     Route: 042
  14. SODIUM CHLORIDE [Suspect]
     Active Substance: SODIUM CHLORIDE
     Indication: Product used for unknown indication
     Dosage: 100 MILLILITER
     Route: 065
  15. BENADRYL ALLERGY + COLD [Concomitant]
     Indication: Product used for unknown indication
     Dosage: UNKNOWN
     Route: 065
  16. DIPHENHYDRAMINE [Concomitant]
     Active Substance: DIPHENHYDRAMINE
     Indication: Product used for unknown indication
     Dosage: 25 MILLIGRAM
     Route: 048
  17. TYLENOL [Concomitant]
     Active Substance: ACETAMINOPHEN
     Indication: Product used for unknown indication
     Dosage: UNK
     Route: 065

REACTIONS (36)
  - Aggression [Not Recovered/Not Resolved]
  - Agitation [Not Recovered/Not Resolved]
  - Behaviour disorder [Not Recovered/Not Resolved]
  - COVID-19 [Not Recovered/Not Resolved]
  - Catheter site bruise [Not Recovered/Not Resolved]
  - Catheter site discolouration [Not Recovered/Not Resolved]
  - Catheter site haemorrhage [Not Recovered/Not Resolved]
  - Contusion [Not Recovered/Not Resolved]
  - Cough [Not Recovered/Not Resolved]
  - Deafness [Not Recovered/Not Resolved]
  - Drug resistance [Not Recovered/Not Resolved]
  - Ear infection [Not Recovered/Not Resolved]
  - Ear pain [Not Recovered/Not Resolved]
  - Fatigue [Not Recovered/Not Resolved]
  - Gait disturbance [Not Recovered/Not Resolved]
  - Grimacing [Not Recovered/Not Resolved]
  - Heart rate increased [Not Recovered/Not Resolved]
  - Inappropriate schedule of product administration [Not Recovered/Not Resolved]
  - Incorrect dose administered [Not Recovered/Not Resolved]
  - Infusion site bruising [Not Recovered/Not Resolved]
  - Infusion site haemorrhage [Not Recovered/Not Resolved]
  - Insomnia [Not Recovered/Not Resolved]
  - Irritability [Not Recovered/Not Resolved]
  - Moaning [Not Recovered/Not Resolved]
  - Mobility decreased [Not Recovered/Not Resolved]
  - Movement disorder [Not Recovered/Not Resolved]
  - Nasal congestion [Not Recovered/Not Resolved]
  - Otorrhoea [Not Recovered/Not Resolved]
  - Pain in extremity [Not Recovered/Not Resolved]
  - Poor quality sleep [Not Recovered/Not Resolved]
  - Poor venous access [Not Recovered/Not Resolved]
  - Recalled product administered [Not Recovered/Not Resolved]
  - Respiratory rate decreased [Not Recovered/Not Resolved]
  - Restlessness [Not Recovered/Not Resolved]
  - Skin discolouration [Not Recovered/Not Resolved]
  - Tendon disorder [Not Recovered/Not Resolved]
